FAERS Safety Report 10358495 (Version 2)
Quarter: 2014Q3

REPORT INFORMATION
  Report Type: Spontaneous
  Country: US (occurrence: US)
  Receive Date: 20140801
  Receipt Date: 20140801
  Transmission Date: 20150326
  Serious: Yes (Hospitalization, Disabling, Other)
  Sender: FDA-Public Use
  Company Number: US-009507513-2010SP064697

PATIENT
  Sex: Female
  Weight: 103.42 kg

DRUGS (3)
  1. VITAMINS (UNSPECIFIED) [Concomitant]
     Active Substance: VITAMINS
  2. NUVARING [Suspect]
     Active Substance: ETHINYL ESTRADIOL\ETONOGESTREL
     Indication: CONTRACEPTION
     Dosage: UNK
     Route: 067
     Dates: start: 20031106, end: 20081217
  3. NUVARING [Suspect]
     Active Substance: ETHINYL ESTRADIOL\ETONOGESTREL
     Indication: MENSTRUAL CYCLE MANAGEMENT

REACTIONS (24)
  - Mental disorder [Unknown]
  - Contusion [Unknown]
  - Pulmonary embolism [Recovered/Resolved with Sequelae]
  - Upper respiratory tract infection [Not Recovered/Not Resolved]
  - Streptococcal infection [Unknown]
  - Pharyngitis [Unknown]
  - Pulmonary infarction [Unknown]
  - Emotional disorder [Unknown]
  - Road traffic accident [Unknown]
  - Anxiety [Not Recovered/Not Resolved]
  - Hypercoagulation [Unknown]
  - Muscle strain [Unknown]
  - Patellofemoral pain syndrome [Unknown]
  - Urinary tract infection [Unknown]
  - Back pain [Unknown]
  - Headache [Unknown]
  - Laceration [Recovered/Resolved]
  - Concussion [Unknown]
  - Tendonitis [Not Recovered/Not Resolved]
  - Stress [Unknown]
  - Tendon disorder [Unknown]
  - Polycystic ovaries [Unknown]
  - Chlamydial infection [Unknown]
  - Off label use [Unknown]

NARRATIVE: CASE EVENT DATE: 200402
